FAERS Safety Report 9147929 (Version 1)
Quarter: 2013Q1

REPORT INFORMATION
  Report Type: Spontaneous
  Country: US (occurrence: US)
  Receive Date: 20130305
  Receipt Date: 20130305
  Transmission Date: 20140127
  Serious: Yes (Other)
  Sender: FDA-Public Use
  Company Number: US-RB-050557-13

PATIENT
  Age: 54 Year
  Sex: Female

DRUGS (2)
  1. SUBOXONE TABLET [Suspect]
     Indication: PRODUCT USED FOR UNKNOWN INDICATION
     Dosage: DOSING DETAILS UNKNOWN
     Route: 065
  2. SUBOXONE FILM [Suspect]
     Indication: PRODUCT USED FOR UNKNOWN INDICATION
     Dosage: SUBOXONE FILM; DOSING DETAILS UNKNOWN
     Route: 065

REACTIONS (16)
  - Appendix disorder [Unknown]
  - Gallbladder disorder [Unknown]
  - Musculoskeletal discomfort [Unknown]
  - Hand fracture [Unknown]
  - Bladder disorder [Unknown]
  - Cystitis interstitial [Unknown]
  - Non-alcoholic steatohepatitis [Unknown]
  - Liver disorder [Unknown]
  - Hepatitis A [Unknown]
  - Sjogren^s syndrome [Unknown]
  - Biliary cirrhosis primary [Unknown]
  - Eye infection [Not Recovered/Not Resolved]
  - Dry eye [Not Recovered/Not Resolved]
  - Tongue dry [Not Recovered/Not Resolved]
  - Device failure [Unknown]
  - Cyst [Unknown]
